FAERS Safety Report 13125394 (Version 1)
Quarter: 2017Q1

REPORT INFORMATION
  Report Type: Spontaneous
  Country: US (occurrence: US)
  Receive Date: 20170118
  Receipt Date: 20170118
  Transmission Date: 20170428
  Serious: Yes (Death, Hospitalization, Other)
  Sender: FDA-Public Use
  Company Number: US-SA-2017SA007570

PATIENT
  Age: 53 Year
  Sex: Male

DRUGS (6)
  1. AUBAGIO [Suspect]
     Active Substance: TERIFLUNOMIDE
     Indication: MULTIPLE SCLEROSIS
     Route: 065
  2. LISINOPRIL. [Concomitant]
     Active Substance: LISINOPRIL
     Indication: HYPERTENSION
  3. SIMVASTATIN. [Concomitant]
     Active Substance: SIMVASTATIN
     Indication: HYPERCHOLESTEROLAEMIA
  4. BACLOFEN. [Suspect]
     Active Substance: BACLOFEN
     Indication: MUSCLE SPASMS
     Route: 065
  5. GABAPENTIN. [Suspect]
     Active Substance: GABAPENTIN
     Indication: MUSCLE SPASMS
     Route: 065
  6. TAMSULOSIN [Concomitant]
     Active Substance: TAMSULOSIN
     Indication: HYPERTENSION

REACTIONS (20)
  - Hyperthyroidism [Unknown]
  - Hypotension [Fatal]
  - Hypoxia [Fatal]
  - Dehydration [Unknown]
  - Acute kidney injury [Unknown]
  - Thrombocytopenia [Unknown]
  - Diarrhoea [Recovered/Resolved]
  - Oliguria [Unknown]
  - Haematochezia [Unknown]
  - Transaminases increased [Unknown]
  - Blood creatinine increased [Unknown]
  - Cardiac arrest [Recovered/Resolved]
  - Anaemia [Unknown]
  - Confusional state [Unknown]
  - Leukocytosis [Recovering/Resolving]
  - Acute respiratory failure [Fatal]
  - Septic shock [Fatal]
  - Mental status changes [Unknown]
  - Coagulopathy [Unknown]
  - Lactic acidosis [Unknown]

NARRATIVE: CASE EVENT DATE: 2016
